FAERS Safety Report 9383444 (Version 3)
Quarter: 2013Q3

REPORT INFORMATION
  Report Type: Spontaneous
  Country: JP (occurrence: JP)
  Receive Date: 20130704
  Receipt Date: 20130821
  Transmission Date: 20140515
  Serious: Yes (Hospitalization, Other)
  Sender: FDA-Public Use
  Company Number: JP-AMGEN-JPNSP2013046492

PATIENT
  Sex: 0

DRUGS (2)
  1. VECTIBIX [Suspect]
     Indication: COLON CANCER
     Dosage: UNK
     Route: 041
  2. CAMPTO [Concomitant]
     Indication: COLON CANCER
     Dosage: UNK
     Route: 041

REACTIONS (1)
  - Convulsion [Recovered/Resolved]
